FAERS Safety Report 9951767 (Version 1)
Quarter: 2014Q1

REPORT INFORMATION
  Report Type: Spontaneous
  Country: CA (occurrence: CA)
  Receive Date: 20140304
  Receipt Date: 20140304
  Transmission Date: 20141002
  Serious: Yes (Death)
  Sender: FDA-Public Use
  Company Number: CA-MALLINCKRODT-T201401416

PATIENT
  Age: 47 Year
  Sex: Male
  Weight: 112 kg

DRUGS (2)
  1. METHADOSE [Suspect]
     Indication: PRODUCT USED FOR UNKNOWN INDICATION
     Route: 065
  2. COCAINE [Suspect]
     Indication: PRODUCT USED FOR UNKNOWN INDICATION
     Route: 065

REACTIONS (3)
  - Drug abuse [Fatal]
  - Somnolence [Fatal]
  - Unresponsive to stimuli [Fatal]
